FAERS Safety Report 23405030 (Version 3)
Quarter: 2025Q2

REPORT INFORMATION
  Report Type: Report from Study
  Country: US (occurrence: US)
  Receive Date: 20240116
  Receipt Date: 20250508
  Transmission Date: 20250716
  Serious: Yes (Other)
  Sender: BOEHRINGER INGELHEIM
  Company Number: US-BoehringerIngelheim-2023-BI-246790

PATIENT
  Age: 69 Year
  Sex: Male

DRUGS (5)
  1. OFEV [Suspect]
     Active Substance: NINTEDANIB
     Indication: Idiopathic pulmonary fibrosis
     Dates: start: 20230620, end: 20230827
  2. OFEV [Suspect]
     Active Substance: NINTEDANIB
     Indication: Systemic sclerosis pulmonary
     Dates: start: 20230828
  3. OFEV [Suspect]
     Active Substance: NINTEDANIB
     Dates: start: 202410
  4. OFEV [Suspect]
     Active Substance: NINTEDANIB
     Dates: start: 202501
  5. MYCOPHENOLIC ACID [Concomitant]
     Active Substance: MYCOPHENOLIC ACID
     Indication: Product used for unknown indication

REACTIONS (11)
  - Pulmonary hypertension [Not Recovered/Not Resolved]
  - Hepatic enzyme increased [Recovering/Resolving]
  - Liver function test increased [Recovered/Resolved]
  - Dyspnoea [Not Recovered/Not Resolved]
  - Hepatic enzyme abnormal [Not Recovered/Not Resolved]
  - Weight decreased [Not Recovered/Not Resolved]
  - Decreased appetite [Not Recovered/Not Resolved]
  - Eating disorder [Not Recovered/Not Resolved]
  - Diarrhoea [Not Recovered/Not Resolved]
  - Cough [Not Recovered/Not Resolved]
  - Blood test abnormal [Unknown]

NARRATIVE: CASE EVENT DATE: 20230701
